FAERS Safety Report 22325557 (Version 1)
Quarter: 2023Q2

REPORT INFORMATION
  Report Type: Spontaneous
  Country: US (occurrence: None)
  Receive Date: 20230515
  Receipt Date: 20230515
  Transmission Date: 20230722
  Serious: No
  Sender: FDA-Public Use
  Company Number: None

PATIENT

DRUGS (1)
  1. ROCURONIUM BROMIDE [Suspect]
     Active Substance: ROCURONIUM BROMIDE

REACTIONS (6)
  - Heart rate increased [None]
  - Respiratory rate increased [None]
  - Agitation [None]
  - Product prescribing issue [None]
  - Blood pressure systolic increased [None]
  - Stress [None]
